FAERS Safety Report 24530847 (Version 2)
Quarter: 2024Q4

REPORT INFORMATION
  Report Type: Report from Study
  Country: US (occurrence: US)
  Receive Date: 20241021
  Receipt Date: 20241105
  Transmission Date: 20250115
  Serious: Yes (Hospitalization, Other)
  Sender: AURINIA PHARMACEUTICALS
  Company Number: US-OTSUKA PHARMACEUTICAL NETHERLANDS B.V.-AUR-004475

PATIENT
  Age: 14 Year
  Sex: Female

DRUGS (13)
  1. LUPKYNIS [Suspect]
     Active Substance: VOCLOSPORIN
     Indication: Juvenile idiopathic arthritis
     Dosage: 23.7 MILLIGRAM, BID
     Route: 048
     Dates: start: 20231011
  2. LUPKYNIS [Suspect]
     Active Substance: VOCLOSPORIN
     Indication: Still^s disease
     Dosage: UNK
  3. JAKAFI [Suspect]
     Active Substance: RUXOLITINIB
     Indication: Juvenile idiopathic arthritis
     Dosage: 5 MILLIGRAM, BID
     Route: 048
     Dates: start: 20230917
  4. JAKAFI [Suspect]
     Active Substance: RUXOLITINIB
     Indication: Still^s disease
     Dosage: 5 MILLIGRAM, BID
     Route: 048
  5. JAKAFI [Suspect]
     Active Substance: RUXOLITINIB
     Dosage: 25 UNK, BID
     Route: 048
     Dates: start: 202406
  6. JAKAFI [Suspect]
     Active Substance: RUXOLITINIB
     Dosage: 25 UNK, BID
     Route: 048
     Dates: start: 202309
  7. JAKAFI [Suspect]
     Active Substance: RUXOLITINIB
     Dosage: 25 UNK, BID
     Dates: start: 202408
  8. CYCLOSPORINE [Suspect]
     Active Substance: CYCLOSPORINE
     Indication: Product used for unknown indication
     Dosage: 100 UNK, BID
     Dates: start: 202310
  9. METHYLPREDNISOLONE [Suspect]
     Active Substance: METHYLPREDNISOLONE
     Indication: Still^s disease
  10. PREDNISONE [Suspect]
     Active Substance: PREDNISONE
     Indication: Still^s disease
  11. VORICONAZOLE [Concomitant]
     Active Substance: VORICONAZOLE
     Indication: Infection prophylaxis
     Dosage: UNK
  12. HYDROCORTISONE [Concomitant]
     Active Substance: HYDROCORTISONE
     Indication: Product used for unknown indication
     Dosage: 40-100 BID
  13. KEVZARA [Concomitant]
     Active Substance: SARILUMAB
     Indication: Product used for unknown indication
     Dosage: UNK
     Dates: start: 202305, end: 202309

REACTIONS (22)
  - Still^s disease [Not Recovered/Not Resolved]
  - Arthritis [Unknown]
  - Condition aggravated [Not Recovered/Not Resolved]
  - Nausea [Unknown]
  - Vomiting [Unknown]
  - Diarrhoea [Unknown]
  - Hallucination [Unknown]
  - Drug hypersensitivity [Unknown]
  - Hypersensitivity [Unknown]
  - Pollakiuria [Unknown]
  - Constipation [Unknown]
  - Dizziness [Unknown]
  - Dyspnoea exertional [Unknown]
  - Emotional disorder [Unknown]
  - Depression [Unknown]
  - Stress [Unknown]
  - Loss of personal independence in daily activities [Unknown]
  - Fatigue [Unknown]
  - Blood immunoglobulin M increased [Unknown]
  - White blood cell count increased [Unknown]
  - Mental status changes [Unknown]
  - Off label use [Unknown]

NARRATIVE: CASE EVENT DATE: 20230917
